FAERS Safety Report 9471824 (Version 1)
Quarter: 2013Q3

REPORT INFORMATION
  Report Type: Spontaneous
  Country: US (occurrence: None)
  Receive Date: 20130819
  Receipt Date: 20130819
  Transmission Date: 20140515
  Serious: Yes (Other)
  Sender: FDA-Public Use
  Company Number: JPI-P-034396

PATIENT
  Age: 42 Year
  Sex: Female

DRUGS (2)
  1. XYREM [Suspect]
     Indication: NARCOLEPSY
     Route: 048
     Dates: start: 20121120
  2. INSULIN [Concomitant]

REACTIONS (8)
  - Blood glucose decreased [None]
  - Loss of consciousness [None]
  - Fall [None]
  - Foaming at mouth [None]
  - Hand fracture [None]
  - Foot fracture [None]
  - Contusion [None]
  - Laceration [None]
